FAERS Safety Report 9178314 (Version 1)
Quarter: 2012Q4

REPORT INFORMATION
  Report Type: 
  Country: US (occurrence: US)
  Receive Date: 20121029
  Receipt Date: 20121029
  Transmission Date: 20130627
  Serious: Yes (Death, Other)
  Sender: FDA-Public Use
  Company Number: US-PFIZER INC-2012267905

PATIENT
  Sex: Male
  Weight: 77.3 kg

DRUGS (2)
  1. SOLU-MEDROL [Suspect]
     Indication: CLL
     Dosage: 1 g, given for 3 days
     Route: 042
     Dates: start: 20120917, end: 20120919
  2. CHLORAMBUCIL [Suspect]
     Indication: CLL
     Dosage: 4 mg, daily
     Route: 048
     Dates: start: 20120917, end: 20120926

REACTIONS (6)
  - Disease progression [Fatal]
  - Chronic lymphocytic leukaemia [Fatal]
  - Asthenia [Fatal]
  - Confusional state [Fatal]
  - Pancytopenia [Fatal]
  - Anaemia [Fatal]
